FAERS Safety Report 25162774 (Version 1)
Quarter: 2025Q2

REPORT INFORMATION
  Report Type: Report from Study
  Country: US (occurrence: US)
  Receive Date: 20250404
  Receipt Date: 20250404
  Transmission Date: 20250716
  Serious: Yes (Death)
  Sender: BAYER
  Company Number: US-BAYER-2025A042323

PATIENT
  Age: 73 Year
  Sex: Male

DRUGS (14)
  1. NUBEQA [Suspect]
     Active Substance: DAROLUTAMIDE
     Indication: Prostate cancer
     Dosage: 600 MG, BID
     Route: 048
  2. BUMEX [Concomitant]
     Active Substance: BUMETANIDE
  3. DIGOXIN [Concomitant]
     Active Substance: DIGOXIN
  4. ELIQUIS [Concomitant]
     Active Substance: APIXABAN
  5. ENTRESTO [Concomitant]
     Active Substance: SACUBITRIL\VALSARTAN
  6. FLOMAX [Concomitant]
     Active Substance: TAMSULOSIN HYDROCHLORIDE
  7. JARDIANCE [Concomitant]
     Active Substance: EMPAGLIFLOZIN
  8. LOVASTATIN [Concomitant]
     Active Substance: LOVASTATIN
  9. LUPRON [Concomitant]
     Active Substance: LEUPROLIDE ACETATE
  10. METOLAZONE [Concomitant]
     Active Substance: METOLAZONE
  11. METOPROLOL SUCCINATE [Concomitant]
     Active Substance: METOPROLOL SUCCINATE
  12. POTASSIUM CHLORIDE [Concomitant]
     Active Substance: POTASSIUM CHLORIDE
  13. PREDNISONE [Concomitant]
     Active Substance: PREDNISONE
  14. SPIRONOLACTONE [Concomitant]
     Active Substance: SPIRONOLACTONE

REACTIONS (1)
  - Death [Fatal]
